FAERS Safety Report 16963393 (Version 2)
Quarter: 2019Q4

REPORT INFORMATION
  Report Type: Spontaneous
  Country: US (occurrence: US)
  Receive Date: 20191025
  Receipt Date: 20191108
  Transmission Date: 20200122
  Serious: Yes (Death, Other)
  Sender: FDA-Public Use
  Company Number: US-GILEAD-2019-0434844

PATIENT
  Age: 68 Year
  Sex: Male
  Weight: 85.71 kg

DRUGS (1)
  1. YESCARTA [Suspect]
     Active Substance: AXICABTAGENE CILOLEUCEL
     Indication: DIFFUSE LARGE B-CELL LYMPHOMA
     Dosage: 68 ML, ONCE
     Route: 042
     Dates: start: 201909, end: 201909

REACTIONS (5)
  - Multiple organ dysfunction syndrome [Unknown]
  - Death [Fatal]
  - Respiratory arrest [Recovered/Resolved with Sequelae]
  - Malaise [Not Recovered/Not Resolved]
  - Aspiration [Not Recovered/Not Resolved]

NARRATIVE: CASE EVENT DATE: 2019
